FAERS Safety Report 6251057-7 (Version None)
Quarter: 2009Q2

REPORT INFORMATION
  Report Type: 
  Country: None (occurrence: None)
  Receive Date: 20090630
  Receipt Date: 20081212
  Transmission Date: 20091009
  Serious: No
  Sender: FDA-Public Use
  Company Number: US-ABBOTT-08P-163-0493096-00

PATIENT
  Sex: Female

DRUGS (2)
  1. ZEMPLAR [Suspect]
     Indication: HYPERPARATHYROIDISM
     Dates: start: 20080801
  2. RENVELA [Concomitant]
     Indication: DRUG USE FOR UNKNOWN INDICATION
     Dosage: WITH MEALS AND SNACKS
     Dates: start: 20081001

REACTIONS (1)
  - DISTURBANCE IN ATTENTION [None]
